FAERS Safety Report 8789572 (Version 1)
Quarter: 2012Q4

REPORT INFORMATION
  Report Type: Spontaneous
  Country: US (occurrence: None)
  Receive Date: 20120910
  Receipt Date: 20120910
  Transmission Date: 20130627
  Serious: Yes (Death)
  Sender: FDA-Public Use
  Company Number: None

PATIENT
  Age: 53 Year
  Sex: Male
  Weight: 95.26 kg

DRUGS (5)
  1. CRESTOR [Suspect]
     Route: 048
     Dates: start: 20120628, end: 20120718
  2. CRESTOR [Suspect]
     Route: 048
     Dates: start: 20120628, end: 20120718
  3. METOPROLOL TARTRATE [Concomitant]
  4. LUNESTA [Concomitant]
  5. ASA [Concomitant]

REACTIONS (1)
  - Death [None]
